FAERS Safety Report 4849620-0 (Version None)
Quarter: 2005Q4

REPORT INFORMATION
  Report Type: 
  Country: None (occurrence: None)
  Receive Date: 20051207
  Receipt Date: 20051123
  Transmission Date: 20060501
  Serious: Yes (Hospitalization)
  Sender: FDA-Public Use
  Company Number: EM2005-0529

PATIENT
  Age: 63 Year
  Sex: Male

DRUGS (3)
  1. PROLEUKIN [Suspect]
     Indication: METASTATIC RENAL CELL CARCINOMA
     Dosage: SUBCUTAN.
     Route: 058
  2. FLUOROURACIL [Suspect]
     Indication: METASTATIC RENAL CELL CARCINOMA
     Dosage: IV
     Route: 042
     Dates: start: 20050228, end: 20050307
  3. INTRON A [Concomitant]

REACTIONS (6)
  - AZOTAEMIA [None]
  - DEHYDRATION [None]
  - DIARRHOEA [None]
  - MUCOSAL INFLAMMATION [None]
  - NEUTROPENIA [None]
  - ORAL INTAKE REDUCED [None]
